FAERS Safety Report 12257562 (Version 1)
Quarter: 2016Q2

REPORT INFORMATION
  Report Type: Spontaneous
  Country: US (occurrence: US)
  Receive Date: 20160412
  Receipt Date: 20160412
  Transmission Date: 20160815
  Serious: Yes (Hospitalization)
  Sender: FDA-Public Use
  Company Number: PHEH2016US008486

PATIENT
  Age: 7 Year
  Sex: Female

DRUGS (1)
  1. JADENU [Suspect]
     Active Substance: DEFERASIROX
     Indication: PRODUCT USED FOR UNKNOWN INDICATION
     Dosage: 540 MG, QD
     Route: 065

REACTIONS (5)
  - Alanine aminotransferase increased [Unknown]
  - Weight decreased [Recovering/Resolving]
  - Aspartate aminotransferase increased [Unknown]
  - Abdominal pain [Unknown]
  - Decreased appetite [Recovering/Resolving]
